FAERS Safety Report 9939712 (Version 1)
Quarter: 2014Q1

REPORT INFORMATION
  Report Type: Report from Study
  Country: US (occurrence: US)
  Receive Date: 20140303
  Receipt Date: 20140303
  Transmission Date: 20141002
  Serious: No
  Sender: FDA-Public Use
  Company Number: US-ABBVIE-13P-163-1036307-00

PATIENT
  Age: 62 Year
  Sex: Female

DRUGS (9)
  1. HUMIRA [Suspect]
     Indication: RHEUMATOID ARTHRITIS
     Dates: start: 20120416
  2. HCTZ [Concomitant]
     Indication: DIURETIC THERAPY
     Route: 048
  3. CELEBREX [Concomitant]
     Indication: RHEUMATOID ARTHRITIS
     Route: 048
  4. METHOTREXATE [Concomitant]
     Indication: RHEUMATOID ARTHRITIS
     Route: 048
  5. BENICAR [Concomitant]
     Indication: HYPERTENSION
     Route: 048
  6. CORTISONE [Concomitant]
     Indication: RHEUMATOID ARTHRITIS
     Dosage: EYE DROPS, 4 DROPS IN RIGHT EYE AND 2 DROPS IN LEFT EYE
  7. OMEPRAZOLE [Concomitant]
     Indication: GASTROOESOPHAGEAL REFLUX DISEASE
     Route: 048
  8. PRO AIR [Concomitant]
     Indication: ASTHMA
     Dosage: INHALER
  9. FLOVENT [Concomitant]
     Indication: ASTHMA
     Dosage: INHALER

REACTIONS (3)
  - Arthralgia [Not Recovered/Not Resolved]
  - Incorrect dose administered [Unknown]
  - Injection site mass [Unknown]
